FAERS Safety Report 17925947 (Version 1)
Quarter: 2020Q2

REPORT INFORMATION
  Report Type: Spontaneous
  Country: US (occurrence: US)
  Receive Date: 20200622
  Receipt Date: 20200622
  Transmission Date: 20200714
  Serious: Yes (Hospitalization, Other)
  Sender: FDA-Public Use
  Company Number: US-NOVOPROD-734570

PATIENT
  Age: 60 Year
  Sex: Male

DRUGS (1)
  1. LEVEMIR [Suspect]
     Active Substance: INSULIN DETEMIR
     Indication: TYPE 1 DIABETES MELLITUS
     Dosage: UNK
     Route: 058
     Dates: start: 2018, end: 2018

REACTIONS (8)
  - Aggression [Unknown]
  - Spinal fracture [Recovered/Resolved]
  - Hypoglycaemic unconsciousness [Recovered/Resolved]
  - Fall [Recovered/Resolved]
  - Diabetes mellitus inadequate control [Recovered/Resolved]
  - Fatigue [Unknown]
  - Blood glucose decreased [Recovered/Resolved]
  - Social avoidant behaviour [Unknown]

NARRATIVE: CASE EVENT DATE: 2018
